FAERS Safety Report 20615195 (Version 6)
Quarter: 2022Q3

REPORT INFORMATION
  Report Type: Spontaneous
  Country: US (occurrence: US)
  Receive Date: 20220321
  Receipt Date: 20220809
  Transmission Date: 20221027
  Serious: Yes (Other)
  Sender: FDA-Public Use
  Company Number: US-GLAXOSMITHKLINE-US2022AMR048776

PATIENT

DRUGS (3)
  1. ZEJULA [Suspect]
     Active Substance: NIRAPARIB
     Indication: Ovarian cancer
     Dosage: 300 MG, QD
     Dates: start: 20220312, end: 202203
  2. ZEJULA [Suspect]
     Active Substance: NIRAPARIB
     Dosage: UNK REDUCED DOSE
     Dates: start: 20220405
  3. ZEJULA [Suspect]
     Active Substance: NIRAPARIB
     Dosage: 300 MG, QD
     Dates: end: 20220502

REACTIONS (11)
  - Cardiac flutter [Unknown]
  - Nausea [Unknown]
  - Blood thyroid stimulating hormone increased [Unknown]
  - Back pain [Unknown]
  - Pelvic pain [Unknown]
  - Middle insomnia [Not Recovered/Not Resolved]
  - Vomiting [Unknown]
  - Anxiety [Unknown]
  - Constipation [Unknown]
  - Dental care [Unknown]
  - Thyroid disorder [Unknown]

NARRATIVE: CASE EVENT DATE: 20220301
